FAERS Safety Report 7286449-0 (Version None)
Quarter: 2011Q1

REPORT INFORMATION
  Report Type: 
  Country: None (occurrence: None)
  Receive Date: 20110210
  Receipt Date: 20110201
  Transmission Date: 20110831
  Serious: Yes (Hospitalization, Other)
  Sender: FDA-Public Use
  Company Number: US-ASTRAZENECA-2011SE05497

PATIENT
  Age: 52 Year
  Sex: Female
  Weight: 63.5 kg

DRUGS (8)
  1. TRAZODONE HCL [Concomitant]
  2. CRESTOR [Suspect]
     Indication: BLOOD CHOLESTEROL INCREASED
     Route: 048
     Dates: start: 20080101
  3. SPIRONOLACTONE [Concomitant]
  4. LASIX [Concomitant]
  5. POTASSIUM [Concomitant]
  6. COREG [Concomitant]
  7. EFFEXOR [Concomitant]
  8. VIT D [Concomitant]

REACTIONS (5)
  - CARDIOMYOPATHY [None]
  - IMPLANTABLE DEFIBRILLATOR INSERTION [None]
  - EJECTION FRACTION DECREASED [None]
  - CARDIAC FAILURE CONGESTIVE [None]
  - CHRONIC OBSTRUCTIVE PULMONARY DISEASE [None]
